FAERS Safety Report 4339007-1 (Version None)
Quarter: 2004Q2

REPORT INFORMATION
  Report Type: 
  Country: None (occurrence: None)
  Receive Date: 20040409
  Receipt Date: 20040405
  Transmission Date: 20050107
  Serious: No
  Sender: FDA-Public Use
  Company Number: 2004UW06764

PATIENT
  Age: 23 Year
  Sex: Female

DRUGS (3)
  1. ELAVIL [Suspect]
     Indication: FIBROMYALGIA
  2. ELAVIL [Suspect]
     Indication: FIBROMYALGIA
     Dosage: 20 MG QD PO
     Route: 048
     Dates: start: 20040129, end: 20040219
  3. FLUOXETINE [Concomitant]

REACTIONS (1)
  - RECTAL HAEMORRHAGE [None]
